FAERS Safety Report 4636358-8 (Version None)
Quarter: 2005Q2

REPORT INFORMATION
  Report Type: 
  Country: None (occurrence: None)
  Receive Date: 20050415
  Receipt Date: 20050121
  Transmission Date: 20051028
  Serious: Yes (Hospitalization)
  Sender: FDA-Public Use
  Company Number: US-BRISTOL-MYERS SQUIBB COMPANY-12834776

PATIENT
  Age: 61 Year
  Sex: Female
  Weight: 63 kg

DRUGS (4)
  1. CARBOPLATIN [Suspect]
     Indication: PERITONEAL CARCINOMA
     Route: 042
     Dates: start: 20041001
  2. PACLITAXEL [Suspect]
     Dates: start: 20041001
  3. ERBITUX [Suspect]
     Dates: start: 20041001
  4. DECADRON [Concomitant]
     Indication: PREMEDICATION

REACTIONS (1)
  - BLOOD MAGNESIUM DECREASED [None]
